FAERS Safety Report 6668676-6 (Version None)
Quarter: 2010Q2

REPORT INFORMATION
  Report Type: 
  Country: None (occurrence: None)
  Receive Date: 20100406
  Receipt Date: 20100324
  Transmission Date: 20101027
  Serious: Yes (Disabling)
  Sender: FDA-Public Use
  Company Number: PHHY2010US14763

PATIENT
  Sex: Female
  Weight: 155 kg

DRUGS (2)
  1. SANDOSTATIN LAR [Suspect]
     Indication: ACROMEGALY
     Dosage: 30 MG, QMO
     Route: 030
     Dates: start: 20090803
  2. HYDROCORTISONE [Concomitant]
     Indication: ADRENAL INSUFFICIENCY
     Dosage: 10 MG EACH; 2 IN THE MORNING AND 1 INTHE EVENING (TOTAL 30 MG)
     Route: 048
     Dates: start: 20090601

REACTIONS (8)
  - ABDOMINAL PAIN [None]
  - DIARRHOEA [None]
  - GASTROENTERITIS [None]
  - INFLUENZA LIKE ILLNESS [None]
  - NAUSEA [None]
  - SWELLING [None]
  - VOMITING [None]
  - WEIGHT DECREASED [None]
